FAERS Safety Report 8590587 (Version 2)
Quarter: 2012Q4

REPORT INFORMATION
  Report Type: Report from Study
  Country: SG (occurrence: SG)
  Receive Date: 20120601
  Receipt Date: 20120927
  Transmission Date: 20130627
  Serious: Yes (Hospitalization)
  Sender: FDA-Public Use
  Company Number: SG-PFIZER INC-2011278853

PATIENT
  Age: 65 Year
  Sex: Male
  Weight: 58.2 kg

DRUGS (10)
  1. CISPLATIN [Suspect]
     Indication: LYMPHOMA
     Dosage: 82 mg, 1x/day
     Route: 042
     Dates: start: 20111027, end: 20111027
  2. INOTUZUMAB OZOGAMICIN [Suspect]
     Indication: LYMPHOMA
     Dosage: 1.3 mg, 1x/day
     Route: 042
     Dates: start: 20111028, end: 20111028
  3. RITUXIMAB [Suspect]
     Indication: LYMPHOMA
     Dosage: 600 mg, 1x/day
     Route: 042
     Dates: start: 20111027, end: 20111027
  4. GEMCITABINE [Suspect]
     Indication: LYMPHOMA
     Dosage: 820 mg, 1x/day
     Route: 042
     Dates: start: 20111027
  5. DEXAMETHASONE ACETATE [Suspect]
     Indication: LYMPHOMA
     Dosage: 40 mg, 1x/day for 4 days
     Route: 048
     Dates: start: 20111027, end: 20111030
  6. BIOTENE MOUTHWASH [Concomitant]
     Indication: PROPHYLAXIS
     Dosage: 10 ml, 4x/day
     Route: 049
     Dates: start: 20111029, end: 20111105
  7. ACICLOVIR [Concomitant]
     Indication: PROPHYLAXIS
     Dosage: 400 mg, 2x/day
     Route: 048
     Dates: start: 20111029, end: 20111105
  8. CIPROFLOXACIN [Concomitant]
     Indication: PROPHYLAXIS
     Dosage: 500 mg, 2x/day
     Route: 048
     Dates: start: 20111029, end: 20111105
  9. RANITIDINE [Concomitant]
     Indication: PROPHYLAXIS
     Dosage: 150 mg, 2x/day
     Route: 048
     Dates: start: 20111029, end: 20111105
  10. SERETIDE [Concomitant]
     Indication: ASTHMA
     Dosage: 2 puffs (50/25) twice daily

REACTIONS (1)
  - Febrile neutropenia [Recovered/Resolved]
